FAERS Safety Report 23611596 (Version 2)
Quarter: 2024Q2

REPORT INFORMATION
  Report Type: Spontaneous
  Country: US (occurrence: US)
  Receive Date: 20240308
  Receipt Date: 20240510
  Transmission Date: 20240716
  Serious: No
  Sender: FDA-Public Use
  Company Number: US-002147023-NVSC2024US049806

PATIENT
  Sex: Female
  Weight: 53.6 kg

DRUGS (1)
  1. ADAKVEO [Suspect]
     Active Substance: CRIZANLIZUMAB-TMCA
     Indication: Product used for unknown indication
     Dosage: UNK
     Route: 042

REACTIONS (5)
  - Dyspepsia [Unknown]
  - Tachycardia [Unknown]
  - Hypertension [Unknown]
  - Oxygen saturation decreased [Unknown]
  - Chest pain [Unknown]
